FAERS Safety Report 7629289-2 (Version None)
Quarter: 2011Q3

REPORT INFORMATION
  Report Type: 
  Country: None (occurrence: None)
  Receive Date: 20110715
  Receipt Date: 20110701
  Transmission Date: 20111222
  Serious: Yes (Disabling)
  Sender: FDA-Public Use
  Company Number: 2011MA005921

PATIENT
  Age: 63 Year
  Sex: Female

DRUGS (6)
  1. ESOMEPRAZOLE MAGNESIUM [Concomitant]
  2. FLUOXETINE [Suspect]
     Indication: DEPRESSION
     Dosage: 20 MG, QD, PO
     Route: 048
     Dates: start: 20110222, end: 20110415
  3. CODEINE SULFATE [Concomitant]
  4. VOLTAREN [Concomitant]
  5. SIMVASTATIN [Concomitant]
  6. MIRTAZAPINE [Concomitant]

REACTIONS (8)
  - HEADACHE [None]
  - PAIN [None]
  - BACK PAIN [None]
  - PAIN IN EXTREMITY [None]
  - SKIN DISCOLOURATION [None]
  - NECK PAIN [None]
  - FATIGUE [None]
  - HYPERSENSITIVITY [None]
